FAERS Safety Report 16532137 (Version 1)
Quarter: 2019Q3

REPORT INFORMATION
  Report Type: Spontaneous
  Country: CN (occurrence: CN)
  Receive Date: 20190704
  Receipt Date: 20190704
  Transmission Date: 20191004
  Serious: Yes (Hospitalization)
  Sender: FDA-Public Use
  Company Number: CN-PFIZER INC-2019278464

PATIENT
  Age: 48 Year
  Sex: Female
  Weight: 63 kg

DRUGS (12)
  1. XI AI KE [Suspect]
     Active Substance: VINDESINE SULFATE
     Dosage: 4 MG, 1X/DAY
     Route: 040
     Dates: start: 20190619, end: 20190619
  2. SODIUM CHLORIDE. [Concomitant]
     Active Substance: SODIUM CHLORIDE
     Indication: VEHICLE SOLUTION USE
     Dosage: 500 ML, 1X/DAY
     Route: 041
     Dates: start: 20190608, end: 20190608
  3. SODIUM CHLORIDE. [Concomitant]
     Active Substance: SODIUM CHLORIDE
     Dosage: 250 ML, 1X/DAY
     Route: 041
     Dates: start: 20190609, end: 20190612
  4. ENDOXAN [CYCLOPHOSPHAMIDE] [Suspect]
     Active Substance: CYCLOPHOSPHAMIDE
     Indication: NON-HODGKIN^S LYMPHOMA
     Dosage: 0.4 G, 2X/DAY
     Route: 041
     Dates: start: 20190609, end: 20190611
  5. PHARMORUBICIN [Suspect]
     Active Substance: EPIRUBICIN
     Indication: NON-HODGKIN^S LYMPHOMA
     Dosage: 70 MG, 1X/DAY
     Route: 041
     Dates: start: 20190612, end: 20190612
  6. XI AI KE [Suspect]
     Active Substance: VINDESINE SULFATE
     Indication: NON-HODGKIN^S LYMPHOMA
     Dosage: 4 MG, 1X/DAY
     Route: 040
     Dates: start: 20190612, end: 20190612
  7. SODIUM CHLORIDE. [Concomitant]
     Active Substance: SODIUM CHLORIDE
     Dosage: 30 ML, 1X/DAY
     Route: 041
     Dates: start: 20190619, end: 20190619
  8. SODIUM CHLORIDE. [Concomitant]
     Active Substance: SODIUM CHLORIDE
     Indication: VEHICLE SOLUTION USE
     Dosage: 30 ML, 1X/DAY
     Route: 041
     Dates: start: 20190612, end: 20190612
  9. RITUXAN [Suspect]
     Active Substance: RITUXIMAB
     Indication: NON-HODGKIN^S LYMPHOMA
     Dosage: 600 MG, 1X/DAY
     Route: 041
     Dates: start: 20190608, end: 20190608
  10. SODIUM CHLORIDE. [Concomitant]
     Active Substance: SODIUM CHLORIDE
     Dosage: 250 ML, 2X/DAY
     Route: 041
     Dates: start: 20190609, end: 20190611
  11. DEXAMETHASONE SODIUM PHOSPHATE. [Suspect]
     Active Substance: DEXAMETHASONE SODIUM PHOSPHATE
     Indication: NON-HODGKIN^S LYMPHOMA
     Dosage: 40 MG, 1X/DAY
     Route: 041
     Dates: start: 20190609, end: 20190612
  12. SODIUM CHLORIDE. [Concomitant]
     Active Substance: SODIUM CHLORIDE
     Dosage: 100 ML, 1X/DAY
     Route: 041
     Dates: start: 20190612, end: 20190612

REACTIONS (1)
  - Hepatic function abnormal [Recovering/Resolving]

NARRATIVE: CASE EVENT DATE: 20190620
